FAERS Safety Report 5179105-6 (Version None)
Quarter: 2006Q4

REPORT INFORMATION
  Report Type: 
  Country: None (occurrence: None)
  Receive Date: 20061219
  Receipt Date: 20061207
  Transmission Date: 20070319
  Serious: Yes (Hospitalization)
  Sender: FDA-Public Use
  Company Number: JP-AVENTIS-200616365EU

PATIENT
  Age: 73 Year
  Sex: Female

DRUGS (6)
  1. LASIX [Suspect]
     Indication: DRUG USE FOR UNKNOWN INDICATION
     Dosage: DOSE: UNKNOWN DOSAGE
     Route: 042
     Dates: start: 20061007, end: 20061108
  2. MILRILA [Suspect]
     Indication: CARDIAC FAILURE ACUTE
     Route: 041
     Dates: start: 20061007, end: 20061030
  3. HANP [Concomitant]
     Dosage: DOSE: 0.025 DF
     Route: 041
     Dates: start: 20061007, end: 20061024
  4. PANSPORIN [Concomitant]
     Route: 042
     Dates: start: 20061007, end: 20061023
  5. INOVAN                             /00360702/ [Concomitant]
     Dosage: DOSE: 5 DF
     Route: 041
     Dates: start: 20061008, end: 20061023
  6. NITROGLYCERIN [Concomitant]
     Route: 041
     Dates: start: 20061024, end: 20061108

REACTIONS (6)
  - BLOOD PRESSURE INCREASED [None]
  - COLON CANCER [None]
  - DEHYDRATION [None]
  - HAEMODIALYSIS [None]
  - HAEMODYNAMIC INSTABILITY [None]
  - RENAL IMPAIRMENT [None]
